FAERS Safety Report 8597441-8 (Version None)
Quarter: 2012Q3

REPORT INFORMATION
  Report Type: 
  Country: None (occurrence: None)
  Receive Date: 20120816
  Receipt Date: 20120807
  Transmission Date: 20120928
  Serious: Yes (Other)
  Sender: FDA-Public Use
  Company Number: US-JNJFOC-20120805171

PATIENT

DRUGS (11)
  1. DEXAMETHASONE [Suspect]
     Indication: ACUTE LYMPHOCYTIC LEUKAEMIA
     Dosage: DIVIDED INTO 2 DOSES WAS GIVEN ORALLY FOR 14 CONSECUTIVE DAYS.
     Route: 048
  2. VORICONAZOLE [Concomitant]
     Indication: PROPHYLAXIS
     Dosage: FROM DAY 1
     Route: 065
  3. POSACONAZOLE [Concomitant]
     Indication: PROPHYLAXIS
     Dosage: FROM DAY 1
     Route: 065
  4. CYTARABINE [Suspect]
     Indication: ACUTE LYMPHOCYTIC LEUKAEMIA
     Dosage: DAY 1
     Route: 037
  5. METHOTREXATE [Suspect]
     Indication: ACUTE LYMPHOCYTIC LEUKAEMIA
     Dosage: DAY 1
     Route: 037
  6. LEVOFLOXACIN [Concomitant]
     Indication: PROPHYLAXIS
     Route: 065
  7. DOXORUBICIN HYDROCHLORIDE [Suspect]
     Indication: ACUTE LYMPHOCYTIC LEUKAEMIA
     Dosage: OVER 15-30 MINUTES ON DAY 1
     Route: 042
  8. BORTEZOMIB [Suspect]
     Indication: ACUTE LYMPHOCYTIC LEUKAEMIA
     Dosage: ON DAYS 1, 4, 8, AND 11
     Route: 042
  9. VINCRISTINE [Suspect]
     Indication: ACUTE LYMPHOCYTIC LEUKAEMIA
     Dosage: (2 MG MAXIMUM DOSE) WAS ADMINISTEREDINTRAVENOUSLY BY PUSH DAY 1, 8, 15, AND 22
     Route: 042
  10. ASPARAGINASE [Suspect]
     Indication: ACUTE LYMPHOCYTIC LEUKAEMIA
     Dosage: 2500 UNITS/M2/DOSE
     Route: 030
  11. VANCOMYCIN [Concomitant]
     Indication: PROPHYLAXIS
     Route: 042

REACTIONS (2)
  - HYPERNATRAEMIA [None]
  - OFF LABEL USE [None]
